FAERS Safety Report 9698305 (Version 2)
Quarter: 2013Q4

REPORT INFORMATION
  Report Type: Spontaneous
  Country: US (occurrence: US)
  Receive Date: 20131120
  Receipt Date: 20131216
  Transmission Date: 20140711
  Serious: No
  Sender: FDA-Public Use
  Company Number: US-009507513-1310USA014190

PATIENT
  Age: 7 Year
  Sex: Female
  Weight: 29.48 kg

DRUGS (2)
  1. NASONEX [Suspect]
     Indication: HYPERSENSITIVITY
     Dosage: 50 MICROGRAM, QD ONE SPRAY EACH NOSTRIL
     Route: 045
     Dates: start: 20130922
  2. MONTELUKAST SODIUM [Concomitant]
     Route: 048

REACTIONS (2)
  - Drug dose omission [Unknown]
  - Product odour abnormal [Unknown]
